FAERS Safety Report 10268196 (Version 1)
Quarter: 2014Q2

REPORT INFORMATION
  Report Type: Spontaneous
  Country: JP (occurrence: JP)
  Receive Date: 20140630
  Receipt Date: 20140630
  Transmission Date: 20141212
  Serious: Yes (Other)
  Sender: FDA-Public Use
  Company Number: JP-PFIZER INC-2014173767

PATIENT
  Sex: Male

DRUGS (2)
  1. LYRICA [Suspect]
     Dosage: UNK, 2X/DAY (IN THE MORNING AND EVENING)
     Route: 048
     Dates: start: 20140602
  2. LYRICA [Suspect]
     Dosage: UNK
     Route: 048

REACTIONS (3)
  - Eczema [Recovering/Resolving]
  - Keloid scar [Recovering/Resolving]
  - Dizziness [Not Recovered/Not Resolved]
